FAERS Safety Report 5215581-8 (Version None)
Quarter: 2007Q1

REPORT INFORMATION
  Report Type: 
  Country: None (occurrence: None)
  Receive Date: 20070123
  Receipt Date: 20070115
  Transmission Date: 20070707
  Serious: Yes (Other)
  Sender: FDA-Public Use
  Company Number: US-ELI_LILLY_AND_COMPANY-US200701002200

PATIENT
  Age: 63 Year
  Sex: Male

DRUGS (2)
  1. GEMZAR [Suspect]
     Indication: URETHRAL CANCER
  2. CARBOPLATIN [Concomitant]
     Indication: URETHRAL CANCER

REACTIONS (4)
  - HAEMATOCRIT DECREASED [None]
  - HAEMOPTYSIS [None]
  - MALIGNANT NEOPLASM OF RENAL PELVIS [None]
  - MALIGNANT NEOPLASM PROGRESSION [None]
